FAERS Safety Report 8979811 (Version 1)
Quarter: 2012Q4

REPORT INFORMATION
  Report Type: 
  Country: NL (occurrence: NL)
  Receive Date: 20121221
  Receipt Date: 20121221
  Transmission Date: 20130627
  Serious: Yes (Other)
  Sender: FDA-Public Use
  Company Number: NL-GILEAD-2012-0066746

PATIENT
  Age: 38 Year
  Sex: Female

DRUGS (1)
  1. HEPSERA [Suspect]
     Indication: CHRONIC HEPATITIS B

REACTIONS (1)
  - Premature delivery [Recovered/Resolved]
